FAERS Safety Report 4756098-4 (Version None)
Quarter: 2005Q3

REPORT INFORMATION
  Report Type: 
  Country: None (occurrence: None)
  Receive Date: 20050830
  Receipt Date: 20050823
  Transmission Date: 20060218
  Serious: Yes (Other)
  Sender: FDA-Public Use
  Company Number: PHBS2005JP12338

PATIENT
  Sex: Female

DRUGS (2)
  1. AREDIA [Suspect]
     Indication: METASTASES TO BONE
     Dosage: 30 MG
     Route: 042
  2. AREDIA [Suspect]
     Dosage: 60 MG
     Route: 042

REACTIONS (4)
  - ASEPTIC NECROSIS BONE [None]
  - OSTEONECROSIS [None]
  - PROSTHESIS IMPLANTATION [None]
  - TOOTH EXTRACTION [None]
